FAERS Safety Report 5331937-7 (Version None)
Quarter: 2007Q2

REPORT INFORMATION
  Report Type: 
  Country: None (occurrence: None)
  Receive Date: 20070523
  Receipt Date: 20070511
  Transmission Date: 20071010
  Serious: Yes (Other)
  Sender: FDA-Public Use
  Company Number: CA-JNJFOC-20061204888

PATIENT
  Sex: Female
  Weight: 72.58 kg

DRUGS (5)
  1. FENTANYL [Suspect]
     Indication: PAIN
     Route: 062
  2. DURAGESIC-100 [Suspect]
     Indication: DRUG USE FOR UNKNOWN INDICATION
     Route: 062
  3. OXYCONTIN [Concomitant]
     Route: 065
  4. PREMARIN [Concomitant]
     Route: 065
  5. RHOVANE [Concomitant]
     Route: 065

REACTIONS (10)
  - DIARRHOEA [None]
  - DIZZINESS [None]
  - HYPOAESTHESIA [None]
  - INAPPROPRIATE SCHEDULE OF DRUG ADMINISTRATION [None]
  - INITIAL INSOMNIA [None]
  - MALAISE [None]
  - MUSCLE SPASMS [None]
  - OVERDOSE [None]
  - PAIN [None]
  - SWELLING FACE [None]
